FAERS Safety Report 5917171-8 (Version None)
Quarter: 2008Q4

REPORT INFORMATION
  Report Type: 
  Country: None (occurrence: None)
  Receive Date: 20081014
  Receipt Date: 20081003
  Transmission Date: 20090506
  Serious: Yes (Hospitalization)
  Sender: FDA-Public Use
  Company Number: US-ROCHE-562393

PATIENT
  Sex: Female

DRUGS (9)
  1. VALIUM [Suspect]
     Indication: SARCOIDOSIS
     Route: 065
     Dates: start: 19930101
  2. ADVAIR DISKUS 100/50 [Suspect]
     Indication: DRUG USE FOR UNKNOWN INDICATION
     Route: 065
  3. MAXAIR [Suspect]
     Indication: DRUG USE FOR UNKNOWN INDICATION
     Route: 065
  4. ALBUTEROL [Suspect]
     Indication: DRUG USE FOR UNKNOWN INDICATION
     Route: 065
  5. STEROID NOS [Suspect]
     Indication: DRUG USE FOR UNKNOWN INDICATION
     Route: 065
  6. PREDNISONE [Suspect]
     Indication: DRUG USE FOR UNKNOWN INDICATION
     Route: 065
  7. LIPITOR [Concomitant]
  8. SINGULAIR [Concomitant]
  9. EPIPEN [Concomitant]

REACTIONS (7)
  - COUGH [None]
  - INSOMNIA [None]
  - JOINT STIFFNESS [None]
  - NAUSEA [None]
  - SARCOIDOSIS [None]
  - SINUS OPERATION [None]
  - TREMOR [None]
